FAERS Safety Report 10888803 (Version 1)
Quarter: 2015Q1

REPORT INFORMATION
  Report Type: Spontaneous
  Country: GB (occurrence: GB)
  Receive Date: 20150305
  Receipt Date: 20150305
  Transmission Date: 20150721
  Serious: Yes (Hospitalization, Other)
  Sender: FDA-Public Use
  Company Number: GB-JNJFOC-20150219113

PATIENT
  Age: 22 Year
  Sex: Male
  Weight: 10 kg

DRUGS (6)
  1. TOPIRAMATE. [Suspect]
     Active Substance: TOPIRAMATE
     Indication: EPILEPSY
     Route: 048
  2. DOMPERIDONE [Concomitant]
     Active Substance: DOMPERIDONE
     Route: 065
  3. CLOBAZAM [Concomitant]
     Active Substance: CLOBAZAM
     Route: 065
  4. VALPROATE SODIUM. [Suspect]
     Active Substance: VALPROATE SODIUM
     Indication: EPILEPSY
     Route: 048
  5. OMEPRAZOLE. [Concomitant]
     Active Substance: OMEPRAZOLE
     Route: 065
  6. PREDNISOLONE. [Concomitant]
     Active Substance: PREDNISOLONE
     Route: 065

REACTIONS (2)
  - Fanconi syndrome [Not Recovered/Not Resolved]
  - Renal tubular acidosis [Not Recovered/Not Resolved]
